FAERS Safety Report 23785096 (Version 1)
Quarter: 2024Q2

REPORT INFORMATION
  Report Type: Spontaneous
  Country: US (occurrence: None)
  Receive Date: 20240425
  Receipt Date: 20240425
  Transmission Date: 20240717
  Serious: Yes (Hospitalization)
  Sender: FDA-Public Use
  Company Number: None

PATIENT
  Age: 75 Year
  Sex: Female

DRUGS (3)
  1. SILDENAFIL CITRATE [Suspect]
     Active Substance: SILDENAFIL CITRATE
     Indication: Pulmonary arterial hypertension
     Dosage: FREQUENCY : 3 TIMES A DAY;?
     Route: 048
     Dates: start: 202312
  2. TYVASO DPI MAINT KIT PWD [Concomitant]
  3. OPSUMIT [Concomitant]
     Active Substance: MACITENTAN

REACTIONS (1)
  - Blood pressure decreased [Unknown]

NARRATIVE: CASE EVENT DATE: 20240419
